FAERS Safety Report 6902832-4 (Version None)
Quarter: 2010Q3

REPORT INFORMATION
  Report Type: 
  Country: None (occurrence: None)
  Receive Date: 20100803
  Receipt Date: 20080617
  Transmission Date: 20110219
  Serious: No
  Sender: FDA-Public Use
  Company Number: US-PFIZER INC-2008046267

PATIENT
  Sex: Female
  Weight: 66.8 kg

DRUGS (4)
  1. LYRICA [Suspect]
     Indication: PAIN IN EXTREMITY
     Route: 048
     Dates: start: 20071101
  2. LYRICA [Suspect]
     Indication: DIABETIC NEUROPATHY
  3. GLYBURIDE [Concomitant]
     Indication: DIABETES MELLITUS
  4. ACTOS [Concomitant]

REACTIONS (4)
  - DRUG INEFFECTIVE [None]
  - INTERVERTEBRAL DISC DISORDER [None]
  - MYALGIA [None]
  - WEIGHT INCREASED [None]
